FAERS Safety Report 9772298 (Version 2)
Quarter: 2014Q1

REPORT INFORMATION
  Report Type: Report from Study
  Country: JP (occurrence: JP)
  Receive Date: 20131219
  Receipt Date: 20140211
  Transmission Date: 20141002
  Serious: Yes (Hospitalization)
  Sender: FDA-Public Use
  Company Number: JP-TAKEDA-2013TUS003236

PATIENT
  Age: 46 Year
  Sex: Male
  Weight: 106.4 kg

DRUGS (22)
  1. FEBURIC [Suspect]
     Indication: HYPERURICAEMIA
     Dosage: 10 MG, QD
     Route: 048
     Dates: start: 20121030, end: 20130429
  2. FEBURIC [Suspect]
     Dosage: 20 MG, QD
     Route: 048
     Dates: start: 20130430
  3. PIOGLITAZONE [Suspect]
     Indication: DIABETES MELLITUS
     Dosage: 15 MG, QD
     Route: 048
     Dates: start: 20120711, end: 20121225
  4. PIOGLITAZONE [Suspect]
     Dosage: 30 MG, QD
     Route: 048
     Dates: start: 20121226, end: 20130220
  5. FUROSEMIDE [Suspect]
     Indication: RENAL FAILURE CHRONIC
     Dosage: 20 MG, QD
     Route: 048
     Dates: start: 20120404
  6. FUROSEMIDE [Suspect]
     Indication: HYPERTENSION
  7. MICARDIS [Concomitant]
     Indication: HYPERTENSION
     Dosage: 40 MG, QD
     Route: 048
     Dates: start: 20121030, end: 20130123
  8. MICARDIS [Concomitant]
     Dosage: 80 MG, QD
     Route: 048
     Dates: start: 20130124, end: 20130320
  9. MICARDIS [Concomitant]
     Dosage: 40 MG, QD
     Route: 048
     Dates: start: 20130321
  10. JANUVIA [Concomitant]
     Indication: DIABETES MELLITUS
     Dosage: 50 MG, QD
     Dates: start: 20110225
  11. KETOPROFEN [Concomitant]
     Indication: PERIARTHRITIS
     Dosage: 40 MG, QD
     Route: 061
     Dates: start: 20110225
  12. KETOPROFEN [Concomitant]
     Indication: ARTHRITIS
  13. MICAMLO [Concomitant]
     Indication: HYPERTENSION
     Dosage: 1 DF, QD
     Route: 048
     Dates: start: 20111027, end: 20130320
  14. METGLUCO [Concomitant]
     Indication: DIABETES MELLITUS
     Dosage: 500 MG, QD
     Route: 048
     Dates: start: 20121226, end: 20130123
  15. METGLUCO [Concomitant]
     Dosage: 750 MG, QD
     Dates: start: 20120711, end: 20121225
  16. URALYT                             /06402701/ [Concomitant]
     Indication: HYPERURICAEMIA
     Dosage: 4 DF, QD
     Route: 048
     Dates: start: 20051107, end: 20130320
  17. TOWARAT-CR [Concomitant]
     Indication: HYPERTENSION
     Dosage: 40 MG, QD
     Route: 048
     Dates: start: 20130321
  18. GLIMEPIRIDE [Concomitant]
     Indication: DIABETES MELLITUS
     Dosage: 0.25 MG, QD
     Route: 048
     Dates: start: 20130726
  19. GLIMEPIRIDE [Concomitant]
     Dosage: 0.5 MG, QD
     Dates: start: 20130628, end: 20130725
  20. GLIMEPIRIDE [Concomitant]
     Dosage: 1.0 MG, QD
     Dates: start: 20130321, end: 20130627
  21. FUROSEMIDE [Concomitant]
     Indication: RENAL FAILURE CHRONIC
     Dosage: 20 MG, QD
     Route: 048
     Dates: start: 20131022
  22. FUROSEMIDE [Concomitant]
     Indication: HYPERTENSION

REACTIONS (2)
  - Renal failure chronic [Recovered/Resolved]
  - Gout [Recovering/Resolving]
